FAERS Safety Report 11781488 (Version 2)
Quarter: 2015Q4

REPORT INFORMATION
  Report Type: Spontaneous
  Country: US (occurrence: US)
  Receive Date: 20151126
  Receipt Date: 20151216
  Transmission Date: 20160305
  Serious: No
  Sender: FDA-Public Use
  Company Number: US-B.I. PHARMACEUTICALS,INC./RIDGEFIELD-2015-BI-63871BP

PATIENT
  Sex: Female

DRUGS (6)
  1. IRON SUPPLEMENT [Concomitant]
     Active Substance: IRON
     Indication: PERNICIOUS ANAEMIA
     Dosage: 65 MG
     Route: 048
     Dates: start: 201508
  2. PRADAXA [Suspect]
     Active Substance: DABIGATRAN ETEXILATE MESYLATE
     Indication: ATRIAL FIBRILLATION
     Dosage: 300 MG
     Route: 048
     Dates: start: 2012
  3. DILTIAZEM [Concomitant]
     Active Substance: DILTIAZEM
     Indication: ATRIAL FIBRILLATION
     Dosage: 60 MG
     Route: 048
  4. METOPROLOL [Concomitant]
     Active Substance: METOPROLOL
     Indication: ATRIAL FIBRILLATION
     Dosage: 100 MG
     Route: 048
  5. METOPROLOL [Concomitant]
     Active Substance: METOPROLOL
     Indication: HEART RATE
  6. DILTIAZEM [Concomitant]
     Active Substance: DILTIAZEM
     Indication: HEART RATE

REACTIONS (1)
  - Oesophageal pain [Not Recovered/Not Resolved]
